FAERS Safety Report 5469249-3 (Version None)
Quarter: 2007Q3

REPORT INFORMATION
  Report Type: 
  Country: None (occurrence: None)
  Receive Date: 20070925
  Receipt Date: 20070925
  Transmission Date: 20080115
  Serious: Yes (Other)
  Sender: FDA-Public Use
  Company Number: None

PATIENT
  Age: 37 Year
  Sex: Male
  Weight: 70.3075 kg

DRUGS (1)
  1. CAPZASIN HP 0.1% CAPZASIN [Suspect]
     Indication: MYALGIA
     Dosage: APPLICATION ONE TIME ONLY TOP
     Route: 061
     Dates: start: 20070923, end: 20070923

REACTIONS (7)
  - APPLICATION SITE BURN [None]
  - BURNING SENSATION [None]
  - BURNS FIRST DEGREE [None]
  - ERYTHEMA [None]
  - HYPERAESTHESIA [None]
  - PAIN [None]
  - SUNBURN [None]
